FAERS Safety Report 8387512-3 (Version None)
Quarter: 2012Q2

REPORT INFORMATION
  Report Type: 
  Country: None (occurrence: None)
  Receive Date: 20120525
  Receipt Date: 20120521
  Transmission Date: 20120825
  Serious: Yes (Hospitalization, Other)
  Sender: FDA-Public Use
  Company Number: PHEH2012US009763

PATIENT
  Sex: Female

DRUGS (6)
  1. GABAPENTIN [Concomitant]
     Route: 048
  2. EFFEXOR [Concomitant]
     Route: 048
  3. ADVAIR DISKUS 100/50 [Concomitant]
     Route: 048
  4. GILENYA [Suspect]
     Indication: MULTIPLE SCLEROSIS
     Dosage: 1 DF, QD
     Route: 048
     Dates: start: 20120326, end: 20120329
  5. RITALIN [Concomitant]
     Route: 048
  6. ZANAFLEX [Concomitant]
     Route: 048

REACTIONS (10)
  - FEELING ABNORMAL [None]
  - NAUSEA [None]
  - URINARY RETENTION [None]
  - CONSTIPATION [None]
  - OROPHARYNGEAL PAIN [None]
  - BLOOD ALCOHOL INCREASED [None]
  - BLOOD GLUCOSE INCREASED [None]
  - DEHYDRATION [None]
  - ABDOMINAL PAIN UPPER [None]
  - MALAISE [None]
